FAERS Safety Report 8249250-7 (Version None)
Quarter: 2012Q2

REPORT INFORMATION
  Report Type: 
  Country: None (occurrence: None)
  Receive Date: 20120402
  Receipt Date: 20120325
  Transmission Date: 20120825
  Serious: Yes (Other)
  Sender: FDA-Public Use
  Company Number: DE-UCBSA-054135

PATIENT
  Age: 69 Year
  Sex: Male
  Weight: 80 kg

DRUGS (1)
  1. KEPPRA [Suspect]
     Indication: CONVULSION
     Dosage: INTIALLY 500 MG AT NOON THEN 2500MG AT 11 PM. TOTAL 3000 MG OVER 8 HOURS
     Route: 042
     Dates: start: 20120324

REACTIONS (1)
  - ACCIDENTAL EXPOSURE [None]
